FAERS Safety Report 13239086 (Version 1)
Quarter: 2017Q1

REPORT INFORMATION
  Report Type: Spontaneous
  Country: FR (occurrence: FR)
  Receive Date: 20170216
  Receipt Date: 20170216
  Transmission Date: 20170428
  Serious: Yes (Hospitalization)
  Sender: FDA-Public Use
  Company Number: FR-PFIZER INC-2017060065

PATIENT
  Age: 49 Year
  Sex: Male

DRUGS (6)
  1. TAHOR [Suspect]
     Active Substance: ATORVASTATIN CALCIUM
     Indication: CARDIOVASCULAR EVENT PROPHYLAXIS
     Dosage: UNK
     Route: 048
  2. INEXIUM /01479302/ [Concomitant]
     Active Substance: ESOMEPRAZOLE MAGNESIUM
     Dosage: UNK
  3. BISOCE [Concomitant]
     Active Substance: BISOPROLOL
     Dosage: UNK
  4. METHADONE AP HP [Concomitant]
     Active Substance: METHADONE HYDROCHLORIDE
     Dosage: UNK
  5. PREVISCAN /00261401/ [Suspect]
     Active Substance: PENTOXIFYLLINE
     Indication: ATRIAL FIBRILLATION
     Dosage: 20 MG, 1X/DAY
     Route: 048
     Dates: end: 20170107
  6. KARDEGIC [Suspect]
     Active Substance: ASPIRIN LYSINE
     Indication: MYOCARDIAL ISCHAEMIA
     Dosage: 75 MG, 1X/DAY
     Route: 048
     Dates: end: 20170107

REACTIONS (2)
  - Cerebral haematoma [Recovered/Resolved with Sequelae]
  - Intracranial mass [Recovered/Resolved]

NARRATIVE: CASE EVENT DATE: 20170107
